FAERS Safety Report 9184127 (Version 2)
Quarter: 2014Q1

REPORT INFORMATION
  Report Type: Spontaneous
  Country: US (occurrence: US)
  Receive Date: 20130322
  Receipt Date: 20140318
  Transmission Date: 20141002
  Serious: Yes (Other)
  Sender: FDA-Public Use
  Company Number: US-BRISTOL-MYERS SQUIBB COMPANY-17327412

PATIENT
  Age: 53 Year
  Sex: Male

DRUGS (1)
  1. ERBITUX [Suspect]
     Indication: NEOPLASM MALIGNANT
     Dosage: RECEIVED THREE TREATMENTS.?400MG/M2:1ST WK,250MG/M2,IV,WEEKLY:TOTAL-5 DOSES
     Route: 042
     Dates: start: 20121231, end: 20130204

REACTIONS (3)
  - Skin exfoliation [Unknown]
  - Malignant neoplasm progression [Unknown]
  - Rash erythematous [Recovered/Resolved]
